FAERS Safety Report 21521672 (Version 1)
Quarter: 2022Q4

REPORT INFORMATION
  Report Type: Report from Study
  Country: US (occurrence: US)
  Receive Date: 20221028
  Receipt Date: 20221028
  Transmission Date: 20230112
  Serious: No
  Sender: FDA-Public Use
  Company Number: US-ABBVIE-4135745

PATIENT
  Sex: Female

DRUGS (5)
  1. HUMIRA [Suspect]
     Active Substance: ADALIMUMAB
     Indication: Colitis ulcerative
     Dosage: FORM STRENGTH 40MG
     Route: 058
  2. HUMIRA [Suspect]
     Active Substance: ADALIMUMAB
     Dosage: FORM STRENGTH 40MG
     Route: 058
  3. Pfizer/BioNTech [Concomitant]
     Indication: COVID-19 immunisation
     Dosage: 1 DOSE ONCE (1ST DOSE)
     Route: 030
     Dates: start: 20210319, end: 20210319
  4. Pfizer/BioNTech [Concomitant]
     Indication: COVID-19 immunisation
     Dosage: 1 DOSE ONCE (2ND DOSE)
     Route: 030
     Dates: start: 20210409, end: 20210409
  5. Pfizer/BioNTech [Concomitant]
     Indication: COVID-19 immunisation
     Dosage: 1 DOSE ONCE (BOOSTER,3RD DOSE)
     Route: 030
     Dates: start: 20211215, end: 20211215

REACTIONS (3)
  - Drug level decreased [Not Recovered/Not Resolved]
  - Inflammation [Unknown]
  - Vertigo [Not Recovered/Not Resolved]
